FAERS Safety Report 25990394 (Version 1)
Quarter: 2025Q4

REPORT INFORMATION
  Report Type: Spontaneous
  Country: US (occurrence: US)
  Receive Date: 20251103
  Receipt Date: 20251103
  Transmission Date: 20260117
  Serious: Yes (Other)
  Sender: AMGEN
  Company Number: US-AMGEN-USASP2025215732

PATIENT

DRUGS (1)
  1. EVOLOCUMAB [Suspect]
     Active Substance: EVOLOCUMAB
     Indication: Glioma
     Dosage: 420 MILLIGRAM
     Route: 058

REACTIONS (5)
  - Seizure [Unknown]
  - Injection site reaction [Unknown]
  - Gastritis [Unknown]
  - Candida infection [Unknown]
  - Dehydration [Unknown]
